FAERS Safety Report 6815720-9 (Version None)
Quarter: 2010Q3

REPORT INFORMATION
  Report Type: 
  Country: None (occurrence: None)
  Receive Date: 20100702
  Receipt Date: 20100628
  Transmission Date: 20110219
  Serious: Yes (Death)
  Sender: FDA-Public Use
  Company Number: JP-ABBOTT-10P-087-0651083-00

PATIENT
  Age: 68 Year
  Sex: Male
  Weight: 57.5 kg

DRUGS (2)
  1. LEUPROLIDE ACETATE [Suspect]
     Indication: PROSTATE CANCER STAGE IV
     Dates: start: 20070608, end: 20080530
  2. CHLORMADINONE ACETATE TAB [Concomitant]
     Indication: PROSTATE CANCER STAGE IV
     Route: 048
     Dates: end: 20080529

REACTIONS (1)
  - NEOPLASM MALIGNANT [None]
